FAERS Safety Report 5366683-7 (Version None)
Quarter: 2007Q2

REPORT INFORMATION
  Report Type: 
  Country: None (occurrence: None)
  Receive Date: 20070622
  Receipt Date: 20060419
  Transmission Date: 20071010
  Serious: No
  Sender: FDA-Public Use
  Company Number: US-ASTRAZENECA-2006UW06920

PATIENT
  Age: 74 Year
  Sex: Male
  Weight: 127 kg

DRUGS (1)
  1. RHINOCORT [Suspect]
     Indication: POSTNASAL DRIP
     Dosage: 1 SPRAY EACH NOSTRIL
     Route: 045
     Dates: start: 20060418

REACTIONS (1)
  - INSOMNIA [None]
